FAERS Safety Report 8462062-4 (Version None)
Quarter: 2012Q2

REPORT INFORMATION
  Report Type: 
  Country: None (occurrence: None)
  Receive Date: 20120625
  Receipt Date: 20120614
  Transmission Date: 20120825
  Serious: Yes (Disabling)
  Sender: FDA-Public Use
  Company Number: NL-ASTRAZENECA-2012SE39948

PATIENT
  Age: 739 Month
  Sex: Male
  Weight: 98 kg

DRUGS (6)
  1. CRESTOR [Suspect]
     Route: 048
     Dates: start: 20030801
  2. CRESTOR [Suspect]
     Route: 048
  3. ENALAPRIL MALEATE [Suspect]
     Indication: HYPERTENSION
     Route: 048
     Dates: start: 20030601, end: 20120515
  4. METOPROLOL TABLET 50MG [Concomitant]
     Route: 048
     Dates: start: 20030601, end: 20120101
  5. ENALAPRIL MALEATE [Suspect]
     Indication: MYOCARDIAL INFARCTION
     Route: 048
     Dates: start: 20030601, end: 20120515
  6. ASCAL TABLET 100MG [Concomitant]
     Route: 048
     Dates: start: 20030601

REACTIONS (3)
  - NEURALGIA [None]
  - MUSCLE SPASMS [None]
  - POLYNEUROPATHY CHRONIC [None]
